FAERS Safety Report 8789225 (Version 2)
Quarter: 2012Q4

REPORT INFORMATION
  Report Type: Spontaneous
  Country: DK (occurrence: None)
  Receive Date: 20120905
  Receipt Date: 20121001
  Transmission Date: 20130627
  Serious: Yes (Hospitalization, Other)
  Sender: FDA-Public Use
  Company Number: 2012MA010584

PATIENT
  Age: 87 Year
  Sex: Female

DRUGS (7)
  1. TRAMADOL HYDROCHLORIDE [Suspect]
     Indication: POSTOPERATIVE PAIN RELIEF
     Route: 048
     Dates: start: 20120728, end: 20120811
  2. LOSARTAN [Concomitant]
  3. OMEPRAZOLE [Concomitant]
  4. STRONTIUM RANELATE [Concomitant]
  5. ATORVASTATIN [Concomitant]
  6. ACETYLSALICYLIC ACID [Concomitant]
  7. FELODIPINE [Concomitant]

REACTIONS (1)
  - Hyponatraemia [None]
